FAERS Safety Report 4474250-2 (Version None)
Quarter: 2004Q4

REPORT INFORMATION
  Report Type: 
  Country: None (occurrence: None)
  Receive Date: 20041008
  Receipt Date: 20040922
  Transmission Date: 20050328
  Serious: Yes (Other)
  Sender: FDA-Public Use
  Company Number: 209473

PATIENT
  Age: 55 Year
  Sex: Female
  Weight: 63 kg

DRUGS (3)
  1. HERCEPTIN [Suspect]
     Indication: BREAST CANCER METASTATIC
     Dosage: 4 MG/KG, Q3W, INTRAVENOUS
     Route: 042
     Dates: start: 20010614, end: 20040624
  2. NAVELBINE [Suspect]
     Indication: BREAST CANCER METASTATIC
     Dosage: 25 MG/M2, 1/WEEK;   25 MG/M2, INTRAVENOUS
     Dates: start: 20010614, end: 20011120
  3. NAVELBINE [Suspect]
     Indication: BREAST CANCER METASTATIC
     Dosage: 25 MG/M2, 1/WEEK;   25 MG/M2, INTRAVENOUS
     Dates: start: 20040901

REACTIONS (1)
  - ARTERIAL DISORDER [None]
